FAERS Safety Report 6616555-2 (Version None)
Quarter: 2010Q1

REPORT INFORMATION
  Report Type: 
  Country: None (occurrence: None)
  Receive Date: 20100305
  Receipt Date: 20100222
  Transmission Date: 20100710
  Serious: Yes (Hospitalization, Other)
  Sender: FDA-Public Use
  Company Number: US-PFIZER INC-2010023869

PATIENT
  Sex: Female

DRUGS (3)
  1. CLEOCIN [Suspect]
     Indication: LYMPHADENOPATHY
     Dosage: UNK
     Route: 042
     Dates: start: 20100201
  2. CLEOCIN [Suspect]
     Dosage: 112.5 MG PER 1.5 TEASPOONS
     Route: 048
     Dates: start: 20100221
  3. AZITHROMYCIN [Suspect]
     Indication: LYMPHADENOPATHY
     Dosage: 120 MG, 1X/DAY
     Dates: start: 20100119, end: 20100101

REACTIONS (1)
  - LYMPHADENOPATHY [None]
